FAERS Safety Report 6863113-0 (Version None)
Quarter: 2010Q3

REPORT INFORMATION
  Report Type: 
  Country: None (occurrence: None)
  Receive Date: 20100721
  Receipt Date: 20100713
  Transmission Date: 20110219
  Serious: Yes (Hospitalization)
  Sender: FDA-Public Use
  Company Number: IT-SANOFI-AVENTIS-2010SA040593

PATIENT
  Age: 78 Year
  Sex: Female

DRUGS (6)
  1. ALDACTONE [Suspect]
     Dosage: DOSE:1 UNIT(S)
     Route: 048
     Dates: start: 20080601, end: 20100405
  2. LASIX [Suspect]
     Indication: PRODUCT USED FOR UNKNOWN INDICATION
     Dosage: DOSE:4 UNIT(S)
     Route: 048
     Dates: start: 20080801, end: 20100405
  3. COUMADIN [Suspect]
     Dosage: DOSE:1 UNIT(S)
     Route: 048
     Dates: start: 20080619, end: 20100405
  4. ENAPREN [Suspect]
     Dosage: DOSE:2 UNIT(S)
     Route: 048
     Dates: start: 20080601, end: 20100405
  5. ALLOPURINOL [Concomitant]
     Route: 048
     Dates: start: 20080801, end: 20100405
  6. LEVOTHYROXINE SODIUM [Concomitant]
     Indication: PRODUCT USED FOR UNKNOWN INDICATION
     Route: 048
     Dates: start: 20080601, end: 20100405

REACTIONS (3)
  - HYPERKALAEMIA [None]
  - PETECHIAE [None]
  - RENAL FAILURE [None]
